FAERS Safety Report 6975023-9 (Version None)
Quarter: 2010Q3

REPORT INFORMATION
  Report Type: 
  Country: None (occurrence: None)
  Receive Date: 20100910
  Receipt Date: 20090115
  Transmission Date: 20110219
  Serious: No
  Sender: FDA-Public Use
  Company Number: US-WYE-H07720909

PATIENT
  Sex: Female
  Weight: 61.29 kg

DRUGS (5)
  1. PRISTIQ [Suspect]
     Route: 048
     Dates: start: 20090101
  2. PRISTIQ [Suspect]
     Dosage: ^HALF A PRISTIQ TABLET^
     Route: 048
     Dates: start: 20090101
  3. CRESTOR [Concomitant]
  4. TRICOR [Concomitant]
  5. SYNTHROID [Concomitant]

REACTIONS (1)
  - FATIGUE [None]
